FAERS Safety Report 8836641 (Version 1)
Quarter: 2012Q4

REPORT INFORMATION
  Report Type: Spontaneous
  Country: US (occurrence: None)
  Receive Date: 20121010
  Receipt Date: 20121010
  Transmission Date: 20130627
  Serious: Yes (Hospitalization)
  Sender: FDA-Public Use
  Company Number: FDB-2012-037

PATIENT
  Age: 54 Year
  Sex: Female

DRUGS (1)
  1. TECHNETIUM TC-99M MEBROFENIN KIT [Suspect]
     Indication: HEPATOBILIARY SCAN
     Route: 042
     Dates: start: 20120926

REACTIONS (4)
  - Feeling hot [None]
  - Dizziness [None]
  - Anaphylactic reaction [None]
  - Abdominal pain upper [None]
